FAERS Safety Report 23510792 (Version 1)
Quarter: 2024Q1

REPORT INFORMATION
  Report Type: Report from Study
  Country: US (occurrence: US)
  Receive Date: 20240212
  Receipt Date: 20240212
  Transmission Date: 20240410
  Serious: Yes (Other)
  Sender: FDA-Public Use
  Company Number: US-ABBVIE-5319987

PATIENT
  Sex: Male

DRUGS (1)
  1. HUMIRA [Suspect]
     Active Substance: ADALIMUMAB
     Indication: Product used for unknown indication
     Route: 058

REACTIONS (15)
  - Cholecystectomy [Unknown]
  - Calculus bladder [Unknown]
  - Hiatus hernia [Unknown]
  - Iliac artery arteriosclerosis [Unknown]
  - Prostatomegaly [Unknown]
  - Bladder mass [Unknown]
  - Bladder hypertrophy [Unknown]
  - Bladder diverticulum [Unknown]
  - Inguinal hernia [Unknown]
  - Abdominal wall disorder [Unknown]
  - Aortic arteriosclerosis [Unknown]
  - Atelectasis [Unknown]
  - Fibrosis [Unknown]
  - Hepatic cirrhosis [Unknown]
  - Arteriosclerosis [Unknown]
